FAERS Safety Report 7752129-8 (Version None)
Quarter: 2011Q3

REPORT INFORMATION
  Report Type: 
  Country: None (occurrence: None)
  Receive Date: 20110915
  Receipt Date: 20110906
  Transmission Date: 20111222
  Serious: Yes (Hospitalization)
  Sender: FDA-Public Use
  Company Number: GB-UCBSA-040557

PATIENT

DRUGS (2)
  1. VIMPAT [Suspect]
     Dosage: 30.5 ML DAILY DOSE OF 15 MG/ML
     Route: 048
  2. VIMPAT [Suspect]

REACTIONS (1)
  - CONDITION AGGRAVATED [None]
